FAERS Safety Report 17849427 (Version 1)
Quarter: 2020Q2

REPORT INFORMATION
  Report Type: Spontaneous
  Country: US (occurrence: US)
  Receive Date: 20200601
  Receipt Date: 20200601
  Transmission Date: 20200714
  Serious: No
  Sender: FDA-Public Use
  Company Number: None

PATIENT
  Age: 38 Year
  Sex: Female
  Weight: 63 kg

DRUGS (6)
  1. PREDNISONE 20MG PRN [Concomitant]
  2. EPINEPHRINE PRN [Concomitant]
  3. WP THYROID 65 MG [Suspect]
     Active Substance: THYROID, PORCINE
     Indication: HYPOTHYROIDISM
     Dosage: ?          QUANTITY:1 TABLET(S);?
     Route: 048
     Dates: start: 20200415, end: 20200520
  4. NATURE-THROID [Concomitant]
     Active Substance: THYROID, PORCINE
  5. VITAMIN D 50000 IU [Concomitant]
     Active Substance: ERGOCALCIFEROL
  6. NUVARING [Concomitant]
     Active Substance: ETHINYL ESTRADIOL\ETONOGESTREL

REACTIONS (2)
  - Nausea [None]
  - Dizziness [None]

NARRATIVE: CASE EVENT DATE: 20200515
